FAERS Safety Report 4881846-2 (Version None)
Quarter: 2006Q1

REPORT INFORMATION
  Report Type: 
  Country: None (occurrence: None)
  Receive Date: 20060117
  Receipt Date: 20051227
  Transmission Date: 20060701
  Serious: Yes (Life-Threatening, Hospitalization)
  Sender: FDA-Public Use
  Company Number: PHEH2005US13850

PATIENT
  Age: 42 Year
  Sex: Male
  Weight: 131.52 kg

DRUGS (4)
  1. LOPRESSOR [Suspect]
     Indication: HYPERTENSION
     Dosage: 100 MG, BID
     Route: 048
     Dates: start: 20010416, end: 20050617
  2. FIORINAL W/CODEINE [Concomitant]
     Indication: HEADACHE
     Dosage: ONE TO TWO TABLETS PRN Q 6 HOURS
     Route: 048
     Dates: start: 20040928, end: 20050628
  3. BENICAR [Concomitant]
     Indication: BLOOD PRESSURE
     Dosage: 40 MG, QD
     Route: 048
     Dates: start: 20050225, end: 20050617
  4. CLONIDINE [Concomitant]
     Indication: BLOOD PRESSURE
     Dosage: 0.2 MG, QD
     Route: 048
     Dates: start: 20050225, end: 20050617

REACTIONS (8)
  - ANEURYSM [None]
  - CEREBRAL HAEMORRHAGE [None]
  - CEREBROVASCULAR ACCIDENT [None]
  - COMA [None]
  - HYPERTENSION [None]
  - INTRACRANIAL ANEURYSM [None]
  - MIGRAINE WITHOUT AURA [None]
  - VOMITING [None]
